FAERS Safety Report 18241942 (Version 2)
Quarter: 2020Q4

REPORT INFORMATION
  Report Type: Spontaneous
  Country: JP (occurrence: JP)
  Receive Date: 20200908
  Receipt Date: 20201106
  Transmission Date: 20210113
  Serious: Yes (Hospitalization, Other)
  Sender: FDA-Public Use
  Company Number: JP-AMGEN-JPNSP2020143367

PATIENT
  Age: 6 Decade
  Sex: Female
  Weight: 53.1 kg

DRUGS (8)
  1. RABEPRAZOLE SODIUM. [Concomitant]
     Active Substance: RABEPRAZOLE SODIUM
     Indication: PROPHYLAXIS
     Dosage: 10 MILLIGRAM, QD
     Route: 048
     Dates: start: 20200730
  2. CARVEDILOL. [Suspect]
     Active Substance: CARVEDILOL
     Indication: CONGESTIVE CARDIOMYOPATHY
     Dosage: 1.25 MG, BID
     Route: 048
     Dates: start: 20200619
  3. FUROSEMIDE. [Concomitant]
     Active Substance: FUROSEMIDE
     Indication: CONGESTIVE CARDIOMYOPATHY
     Dosage: 10 MILLIGRAM, QD
     Route: 048
     Dates: start: 20200730
  4. ALPRAZOLAM. [Concomitant]
     Active Substance: ALPRAZOLAM
     Indication: PRODUCT USED FOR UNKNOWN INDICATION
     Dosage: 0.4 MILLIGRAM, QD
     Route: 048
     Dates: start: 20200620
  5. CORALAN [Suspect]
     Active Substance: IVABRADINE HYDROCHLORIDE
     Indication: CONGESTIVE CARDIOMYOPATHY
     Dosage: 2.5 MILLIGRAM, BID
     Route: 048
     Dates: start: 20200701
  6. FURSULTIAMINE HYDROCHLORIDE [Concomitant]
     Active Substance: FURSULTIAMINE HYDROCHLORIDE
     Indication: PRODUCT USED FOR UNKNOWN INDICATION
     Dosage: 25 MILLIGRAM, BID
     Route: 048
     Dates: start: 20200730
  7. TANATRIL [Concomitant]
     Active Substance: IMIDAPRIL
     Indication: CONGESTIVE CARDIOMYOPATHY
     Dosage: 1.25 MG, BID
     Route: 048
     Dates: start: 20200618
  8. SPIRONOLACTONE. [Concomitant]
     Active Substance: SPIRONOLACTONE
     Indication: CONGESTIVE CARDIOMYOPATHY
     Dosage: 25 MILLIGRAM, QD
     Route: 048
     Dates: start: 20200623

REACTIONS (3)
  - Off label use [Unknown]
  - Thrombosis [Recovered/Resolved]
  - Protein C decreased [Unknown]

NARRATIVE: CASE EVENT DATE: 2020
